FAERS Safety Report 8506133-2 (Version None)
Quarter: 2012Q3

REPORT INFORMATION
  Report Type: 
  Country: None (occurrence: None)
  Receive Date: 20120712
  Receipt Date: 20120702
  Transmission Date: 20120928
  Serious: No
  Sender: FDA-Public Use
  Company Number: US-ABBOTT-12P-163-0952195-00

PATIENT
  Sex: Female
  Weight: 54.026 kg

DRUGS (12)
  1. HUMIRA [Suspect]
     Dosage: 40 MG 1.3/MONTH
     Dates: start: 20111004, end: 20111028
  2. FLU VACCINE [Concomitant]
     Indication: PROPHYLAXIS
     Dosage: 1 SHOT DAILY
     Route: 050
     Dates: start: 20111003, end: 20111003
  3. FLU VACCINE [Concomitant]
     Indication: INFLUENZA
  4. HUMIRA [Suspect]
     Indication: ANKYLOSING SPONDYLITIS
     Dates: start: 20110509, end: 20110605
  5. MULTI-VITAMINS [Concomitant]
     Indication: PRODUCT USED FOR UNKNOWN INDICATION
     Dosage: 2 PILLS DAILY
     Route: 048
     Dates: start: 20110610, end: 20120109
  6. CIMZIA [Concomitant]
     Indication: ANKYLOSING SPONDYLITIS
     Route: 050
     Dates: start: 20111103, end: 20120109
  7. FISH OIL [Concomitant]
     Indication: PRODUCT USED FOR UNKNOWN INDICATION
     Dosage: 1200 MG DAILY
     Route: 048
     Dates: start: 20110610, end: 20120109
  8. CAFFEINE CITRATE [Concomitant]
     Indication: PRODUCT USED FOR UNKNOWN INDICATION
     Dosage: 1 SERVING 3.5 WEEK
     Route: 048
     Dates: start: 20110509, end: 20120109
  9. PREDNISONE [Concomitant]
     Route: 048
     Dates: start: 20111007, end: 20111013
  10. PREDNISONE [Concomitant]
     Route: 048
     Dates: start: 20111014, end: 20111028
  11. PREDNISONE [Concomitant]
     Indication: ANKYLOSING SPONDYLITIS
     Route: 048
     Dates: start: 20110915, end: 20111006
  12. TEA [Concomitant]
     Indication: PRODUCT USED FOR UNKNOWN INDICATION
     Dosage: 1 SERVING 3.5 WEEK
     Route: 048
     Dates: start: 20110509, end: 20120109

REACTIONS (7)
  - NAUSEA [None]
  - ANKYLOSING SPONDYLITIS [None]
  - DRUG INEFFECTIVE [None]
  - ALPHA 1 FOETOPROTEIN INCREASED [None]
  - BLOOD POTASSIUM DECREASED [None]
  - RESPIRATORY TRACT INFECTION [None]
  - SINUSITIS [None]
